FAERS Safety Report 6696447-3 (Version None)
Quarter: 2010Q2

REPORT INFORMATION
  Report Type: 
  Country: None (occurrence: None)
  Receive Date: 20100421
  Receipt Date: 20100407
  Transmission Date: 20101027
  Serious: Yes (Hospitalization)
  Sender: FDA-Public Use
  Company Number: 2010AP000720

PATIENT
  Age: 90 Year
  Sex: Male

DRUGS (3)
  1. CITALOPRAM HYDROBROMIDE [Suspect]
     Indication: DEPRESSION
     Dosage: 10 MG;  PO
     Route: 048
     Dates: start: 20010216, end: 20100218
  2. ACETAMINOPHEN [Concomitant]
  3. BUPESONIDE (BUDESONIDE) [Concomitant]

REACTIONS (2)
  - FALL [None]
  - HYPONATRAEMIA [None]
